FAERS Safety Report 8852856 (Version 1)
Quarter: 2012Q4

REPORT INFORMATION
  Report Type: 
  Country: SK (occurrence: SK)
  Receive Date: 20121022
  Receipt Date: 20121022
  Transmission Date: 20130627
  Serious: Yes (Hospitalization, Other)
  Sender: FDA-Public Use
  Company Number: SK-ABBOTT-12P-260-0997068-00

PATIENT
  Age: 58 Year
  Sex: Male

DRUGS (2)
  1. SEVORANE [Suspect]
     Indication: PRODUCT USED FOR UNKNOWN INDICATION
  2. STALEVO [Interacting]
     Indication: PRODUCT USED FOR UNKNOWN INDICATION

REACTIONS (1)
  - Delirium [Unknown]
